FAERS Safety Report 8833632 (Version 2)
Quarter: 2012Q4

REPORT INFORMATION
  Report Type: 
  Country: US (occurrence: US)
  Receive Date: 20121010
  Receipt Date: 20121106
  Transmission Date: 20130627
  Serious: Yes (Other)
  Sender: FDA-Public Use
  Company Number: US-ROCHE-1131235

PATIENT
  Sex: Female

DRUGS (8)
  1. RITUXAN [Suspect]
     Indication: IDIOPATHIC THROMBOCYTOPENIC PURPURA
     Route: 065
  2. RITUXAN [Suspect]
     Indication: OFF LABEL USE
  3. PREDNISOLONE [Concomitant]
     Route: 065
  4. IMURAN [Concomitant]
     Route: 065
  5. IMURAN [Concomitant]
     Route: 065
  6. PRILOSEC [Concomitant]
  7. ZYRTEC [Concomitant]
  8. VINCRISTINE [Concomitant]

REACTIONS (18)
  - Thrombocytopenia [Unknown]
  - Retinal haemorrhage [Unknown]
  - Rash [Unknown]
  - Oropharyngeal pain [Unknown]
  - Respiratory tract congestion [Unknown]
  - Back pain [Unknown]
  - Urticaria [Unknown]
  - Abdominal discomfort [Unknown]
  - Oedema [Unknown]
  - Nausea [Unknown]
  - Dysgeusia [Unknown]
  - Ear infection [Unknown]
  - Contusion [Unknown]
  - Musculoskeletal pain [Unknown]
  - Limb discomfort [Unknown]
  - Swollen tongue [Unknown]
  - Hypertension [Unknown]
  - Age-related macular degeneration [Unknown]
